FAERS Safety Report 5739621-2 (Version None)
Quarter: 2008Q2

REPORT INFORMATION
  Report Type: 
  Country: None (occurrence: None)
  Receive Date: 20080513
  Receipt Date: 20070824
  Transmission Date: 20081010
  Serious: Yes (Life-Threatening)
  Sender: FDA-Public Use
  Company Number: 80751

PATIENT
  Age: 63 Year
  Sex: Male

DRUGS (5)
  1. IBUPROFEN [Suspect]
     Indication: ARTHRALGIA
     Dosage: 400 MG/3/1/ORAL
     Route: 048
     Dates: start: 20070712, end: 20070812
  2. DEVILS CLAW 510 MG/INKNOWN [Suspect]
     Indication: ARTHRALGIA
     Dosage: 510 MG/3/1DAYS/ORAL
     Route: 048
     Dates: end: 20070812
  3. COD LIVER [Concomitant]
  4. GARLIC [Concomitant]
  5. GLUCOSAMINE [Concomitant]

REACTIONS (1)
  - UPPER GASTROINTESTINAL HAEMORRHAGE [None]
